FAERS Safety Report 13937245 (Version 1)
Quarter: 2017Q3

REPORT INFORMATION
  Report Type: Report from Study
  Country: DE (occurrence: DE)
  Receive Date: 20170905
  Receipt Date: 20170905
  Transmission Date: 20171127
  Serious: Yes (Death)
  Sender: FDA-Public Use
  Company Number: DE-MYLANLABS-2017M1054225

PATIENT
  Age: 4 Month
  Sex: Female

DRUGS (10)
  1. CYTARABINE. [Suspect]
     Active Substance: CYTARABINE
     Route: 037
  2. IDARUBICIN [Suspect]
     Active Substance: IDARUBICIN
     Dosage: DOSE ADJUSTED ACCORDING TO BODY WEIGHT
     Route: 065
  3. CYTARABINE. [Suspect]
     Active Substance: CYTARABINE
     Indication: MYELOID LEUKAEMIA
     Dosage: DOSE ADJUSTED ACCORDING TO BODY WEIGHT
     Route: 065
  4. CYTARABINE. [Suspect]
     Active Substance: CYTARABINE
     Dosage: DOSE ADJUSTED ACCORDING TO BODY WEIGHT
     Route: 065
  5. CYTARABINE. [Suspect]
     Active Substance: CYTARABINE
     Dosage: DOSE ADJUSTED ACCORDING TO BODY WEIGHT
     Route: 065
  6. IDARUBICIN [Suspect]
     Active Substance: IDARUBICIN
     Indication: MYELOID LEUKAEMIA
     Dosage: DOSE ADJUSTED ACCORDING TO BODY WEIGHT
     Route: 065
  7. CYTARABINE. [Suspect]
     Active Substance: CYTARABINE
     Indication: PROPHYLAXIS
     Dosage: DOSE ADJUSTED ACCORDING TO BODY WEIGHT
     Route: 065
  8. CYTARABINE. [Suspect]
     Active Substance: CYTARABINE
     Dosage: DOSE ADJUSTED ACCORDING TO BODY WEIGHT
     Route: 065
  9. ETOPOSIDE. [Suspect]
     Active Substance: ETOPOSIDE
     Indication: MYELOID LEUKAEMIA
     Dosage: DOSE ADJUSTED ACCORDING TO BODY WEIGHT
     Route: 065
  10. MITOXANTRONE [Suspect]
     Active Substance: MITOXANTRONE HYDROCHLORIDE
     Indication: MYELOID LEUKAEMIA
     Dosage: DOSE ADJUSTED ACCORDING TO BODY WEIGHT
     Route: 065

REACTIONS (1)
  - Fungal sepsis [Fatal]
